FAERS Safety Report 7992927-9 (Version None)
Quarter: 2011Q4

REPORT INFORMATION
  Report Type: 
  Country: None (occurrence: None)
  Receive Date: 20111219
  Receipt Date: 20110927
  Transmission Date: 20120403
  Serious: No
  Sender: FDA-Public Use
  Company Number: US-ASTRAZENECA-2011SE45549

PATIENT
  Age: 56 Year
  Sex: Female
  Weight: 68 kg

DRUGS (10)
  1. PROZAC [Concomitant]
  2. CRESTOR [Suspect]
     Indication: BLOOD CHOLESTEROL ABNORMAL
     Route: 048
     Dates: start: 20110615, end: 20110624
  3. VAGINAL HORMONE [Concomitant]
  4. CRESTOR [Suspect]
     Indication: HYPERLIPIDAEMIA
     Route: 048
     Dates: start: 20110615, end: 20110624
  5. ALBUTEROL [Concomitant]
     Indication: DYSPNOEA
  6. POTASSIUM CHLORIDE [Concomitant]
  7. CALCIUM [Concomitant]
  8. CRESTOR [Suspect]
     Route: 048
  9. CRESTOR [Suspect]
     Route: 048
  10. LASIX [Concomitant]

REACTIONS (1)
  - ASTHMA [None]
